FAERS Safety Report 13991562 (Version 2)
Quarter: 2017Q4

REPORT INFORMATION
  Report Type: Report from Study
  Country: US (occurrence: US)
  Receive Date: 20170920
  Receipt Date: 20171018
  Transmission Date: 20180321
  Serious: Yes (Hospitalization)
  Sender: FDA-Public Use
  Company Number: US-TAIHO ONCOLOGY INC-EU-2017-01224

PATIENT
  Age: 73 Year
  Sex: Male
  Weight: 99.88 kg

DRUGS (3)
  1. LONSURF [Suspect]
     Active Substance: TIPIRACIL HYDROCHLORIDE\TRIFLURIDINE
     Indication: COLON CANCER METASTATIC
     Dosage: CYCLE 2 STARTED 21/AUG/2017 TO 01/SEP/2017
     Route: 048
     Dates: start: 201707
  2. NORCO [Concomitant]
     Active Substance: ACETAMINOPHEN\HYDROCODONE BITARTRATE
     Indication: PAIN
     Dosage: 10/325 MG
  3. FENTANYL. [Concomitant]
     Active Substance: FENTANYL
     Indication: PAIN

REACTIONS (2)
  - Disease progression [Unknown]
  - Thrombosis [Recovered/Resolved]

NARRATIVE: CASE EVENT DATE: 201708
